FAERS Safety Report 17820349 (Version 1)
Quarter: 2020Q2

REPORT INFORMATION
  Report Type: Spontaneous
  Country: DK (occurrence: DK)
  Receive Date: 20200525
  Receipt Date: 20200525
  Transmission Date: 20200714
  Serious: Yes (Life-Threatening, Hospitalization)
  Sender: FDA-Public Use
  Company Number: DK-B.I. PHARMACEUTICALS,INC./RIDGEFIELD-2020-12-026065

PATIENT
  Age: 56 Year
  Sex: Female
  Weight: 100 kg

DRUGS (2)
  1. JARDIANCE [Suspect]
     Active Substance: EMPAGLIFLOZIN
     Indication: TYPE 2 DIABETES MELLITUS
     Dosage: STYRKE: 10 MG
     Route: 048
     Dates: start: 20151005, end: 20200427
  2. DICILLIN [DICLOXACILLIN SODIUM MONOHYDRATE] [Concomitant]
     Indication: INFECTION
     Dosage: STYRKE: 500 MG
     Route: 048
     Dates: start: 20200422, end: 20200506

REACTIONS (5)
  - Necrotising fasciitis [Recovered/Resolved with Sequelae]
  - Cardiovascular disorder [Unknown]
  - Abscess [Unknown]
  - Erythema [Unknown]
  - Sepsis [Unknown]

NARRATIVE: CASE EVENT DATE: 202004
